FAERS Safety Report 9353119 (Version 1)
Quarter: 2013Q2

REPORT INFORMATION
  Report Type: Spontaneous
  Country: US (occurrence: None)
  Receive Date: 20130612
  Receipt Date: 20130612
  Transmission Date: 20140414
  Serious: Yes (Hospitalization, Disabling)
  Sender: FDA-Public Use
  Company Number: PRAE13-000615

PATIENT
  Sex: Male

DRUGS (1)
  1. DEBROX [Suspect]
     Indication: CERUMEN IMPACTION
     Dosage: OTIC

REACTIONS (1)
  - Hypoacusis [None]
